FAERS Safety Report 9496867 (Version 1)
Quarter: 2013Q3

REPORT INFORMATION
  Report Type: Spontaneous
  Country: US (occurrence: None)
  Receive Date: 20130903
  Receipt Date: 20130903
  Transmission Date: 20140515
  Serious: Yes (Disabling, Other)
  Sender: FDA-Public Use
  Company Number: None

PATIENT
  Sex: Female
  Weight: 61.24 kg

DRUGS (3)
  1. EFFEXOR [Suspect]
     Indication: POST-TRAUMATIC STRESS DISORDER
     Route: 048
  2. EFFEXOR [Suspect]
     Indication: ANXIETY
     Route: 048
  3. EFFEXOR [Suspect]
     Indication: DEPRESSION
     Route: 048

REACTIONS (22)
  - Muscle rigidity [None]
  - Arthralgia [None]
  - Myalgia [None]
  - Tremor [None]
  - Headache [None]
  - Asthenia [None]
  - Dry mouth [None]
  - Dysgeusia [None]
  - Decreased appetite [None]
  - Dizziness postural [None]
  - Local swelling [None]
  - Local swelling [None]
  - Cough [None]
  - Wheezing [None]
  - Asthenia [None]
  - Fatigue [None]
  - Fatigue [None]
  - Thirst [None]
  - Chills [None]
  - Paraesthesia [None]
  - Night sweats [None]
  - Bursitis [None]
